FAERS Safety Report 15559574 (Version 2)
Quarter: 2018Q4

REPORT INFORMATION
  Report Type: Spontaneous
  Country: US (occurrence: US)
  Receive Date: 20181029
  Receipt Date: 20181226
  Transmission Date: 20190205
  Serious: Yes (Death, Life-Threatening, Hospitalization, Other)
  Sender: FDA-Public Use
  Company Number: US-CIPLA LTD.-2018US22100

PATIENT

DRUGS (2)
  1. LISINOPRIL. [Suspect]
     Active Substance: LISINOPRIL
     Indication: PRODUCT USED FOR UNKNOWN INDICATION
     Dosage: UNK
     Route: 065
  2. LISINOPRIL. [Suspect]
     Active Substance: LISINOPRIL
     Dosage: UNK, RESTARTED AFETR 3 MONTHS
     Route: 065

REACTIONS (6)
  - Intestinal perforation [Unknown]
  - Renal injury [Unknown]
  - Septic shock [Unknown]
  - Acute hepatic failure [Fatal]
  - Encephalopathy [Unknown]
  - Ileus [Unknown]
